FAERS Safety Report 18281386 (Version 2)
Quarter: 2020Q4

REPORT INFORMATION
  Report Type: Spontaneous
  Country: US (occurrence: US)
  Receive Date: 20200918
  Receipt Date: 20201126
  Transmission Date: 20210113
  Serious: No
  Sender: FDA-Public Use
  Company Number: US-MICRO LABS LIMITED-ML2020-02577

PATIENT
  Age: 68 Year
  Sex: Female
  Weight: 56.75 kg

DRUGS (3)
  1. DORZOLAMIDE/TIMOLOL [Suspect]
     Active Substance: DORZOLAMIDE\TIMOLOL
     Indication: INTRAOCULAR PRESSURE TEST
     Dosage: 1 DROP TWICE DAILY (ONLY IN LEFT EYE)
     Dates: start: 20200823, end: 20200824
  2. METFORMIN [Concomitant]
     Active Substance: METFORMIN HYDROCHLORIDE
     Indication: DIABETES MELLITUS
     Dates: end: 202008
  3. JARDIANCE [Concomitant]
     Active Substance: EMPAGLIFLOZIN

REACTIONS (6)
  - Eye irritation [Recovered/Resolved]
  - Drug ineffective [Unknown]
  - Intraocular pressure increased [Recovered/Resolved]
  - Ocular discomfort [Recovered/Resolved]
  - Eye pain [Recovered/Resolved]
  - Product substitution issue [Unknown]

NARRATIVE: CASE EVENT DATE: 20200823
